FAERS Safety Report 4807129-4 (Version None)
Quarter: 2005Q4

REPORT INFORMATION
  Report Type: 
  Country: None (occurrence: None)
  Receive Date: 20051024
  Receipt Date: 20051006
  Transmission Date: 20060501
  Serious: Yes (Other)
  Sender: FDA-Public Use
  Company Number: DE-GLAXOSMITHKLINE-D0047674A

PATIENT
  Age: 30 Year
  Sex: Male
  Weight: 78 kg

DRUGS (1)
  1. MALARONE [Suspect]
     Indication: MALARIA PROPHYLAXIS
     Route: 048
     Dates: start: 20050914, end: 20050929

REACTIONS (5)
  - DIARRHOEA [None]
  - HALLUCINATION [None]
  - NAUSEA [None]
  - TREMOR [None]
  - VOMITING [None]
